FAERS Safety Report 7019271-0 (Version None)
Quarter: 2010Q3

REPORT INFORMATION
  Report Type: 
  Country: None (occurrence: None)
  Receive Date: 20100928
  Receipt Date: 20100920
  Transmission Date: 20110219
  Serious: Yes (Other)
  Sender: FDA-Public Use
  Company Number: US-GENENTECH-305582

PATIENT
  Sex: Female
  Weight: 87.075 kg

DRUGS (1)
  1. XOLAIR [Suspect]
     Indication: ASTHMA
     Dosage: 150 MG, Q2W
     Route: 058
     Dates: start: 20100811, end: 20100811

REACTIONS (2)
  - ANAPHYLACTIC SHOCK [None]
  - BLINDNESS [None]
